FAERS Safety Report 5591777-0 (Version None)
Quarter: 2008Q1

REPORT INFORMATION
  Report Type: 
  Country: None (occurrence: None)
  Receive Date: 20080115
  Receipt Date: 20080103
  Transmission Date: 20080703
  Serious: Yes (Other)
  Sender: FDA-Public Use
  Company Number: B0360372A

PATIENT
  Age: 43 Year
  Sex: Male

DRUGS (4)
  1. PAROXETINE HYDROCHLORIDE [Suspect]
     Dosage: 20MG UNKNOWN
     Route: 065
     Dates: start: 19970701
  2. PROPRANOLOL [Concomitant]
  3. DIAZEPAM [Concomitant]
  4. DIAZEPAM [Concomitant]
     Dates: start: 19980811, end: 20010326

REACTIONS (27)
  - AGITATION [None]
  - ANXIETY [None]
  - CONFUSIONAL STATE [None]
  - DIARRHOEA [None]
  - DISTURBANCE IN ATTENTION [None]
  - DIZZINESS [None]
  - DYSGEUSIA [None]
  - ERECTILE DYSFUNCTION [None]
  - FATIGUE [None]
  - HYPERHIDROSIS [None]
  - HYPERVENTILATION [None]
  - INCOHERENT [None]
  - INFLUENZA [None]
  - LETHARGY [None]
  - MEMORY IMPAIRMENT [None]
  - MOOD SWINGS [None]
  - NAUSEA [None]
  - NIGHTMARE [None]
  - PARAESTHESIA [None]
  - SENSORY DISTURBANCE [None]
  - SLEEP DISORDER [None]
  - SUICIDAL IDEATION [None]
  - SYNCOPE [None]
  - TREMOR [None]
  - VERTIGO [None]
  - VOMITING [None]
  - WITHDRAWAL SYNDROME [None]
